FAERS Safety Report 13562940 (Version 1)
Quarter: 2017Q2

REPORT INFORMATION
  Report Type: Spontaneous
  Country: US (occurrence: US)
  Receive Date: 20170519
  Receipt Date: 20170519
  Transmission Date: 20170830
  Serious: No
  Sender: FDA-Public Use
  Company Number: US-JNJFOC-20170422924

PATIENT
  Sex: Female

DRUGS (3)
  1. SUDAFED 12 HOUR [Suspect]
     Active Substance: PSEUDOEPHEDRINE HYDROCHLORIDE
     Indication: ALLERGIC SINUSITIS
     Route: 048
     Dates: start: 20170419
  2. SUDAFED 12 HOUR [Suspect]
     Active Substance: PSEUDOEPHEDRINE HYDROCHLORIDE
     Route: 048
  3. DIAZEPAM. [Concomitant]
     Active Substance: DIAZEPAM
     Indication: FEELING OF RELAXATION
     Route: 065

REACTIONS (7)
  - Lacrimation increased [Not Recovered/Not Resolved]
  - Product label issue [None]
  - Product use in unapproved indication [Not Recovered/Not Resolved]
  - Dizziness [Not Recovered/Not Resolved]
  - Lymph node pain [Not Recovered/Not Resolved]
  - Headache [Not Recovered/Not Resolved]
  - Contraindicated product administered [Not Recovered/Not Resolved]

NARRATIVE: CASE EVENT DATE: 20170419
